FAERS Safety Report 9932824 (Version 1)
Quarter: 2014Q1

REPORT INFORMATION
  Report Type: Spontaneous
  Country: US (occurrence: US)
  Receive Date: 20140228
  Receipt Date: 20140228
  Transmission Date: 20141002
  Serious: No
  Sender: FDA-Public Use
  Company Number: US-GLAXOSMITHKLINE-A1050454A

PATIENT
  Sex: Female

DRUGS (2)
  1. IMITREX [Suspect]
     Indication: PRODUCT USED FOR UNKNOWN INDICATION
     Dosage: 6ML SINGLE DOSE
     Route: 042
     Dates: start: 20131119
  2. NO CONCURRENT MEDICATION [Concomitant]

REACTIONS (1)
  - Incorrect route of drug administration [Unknown]
